FAERS Safety Report 23238508 (Version 2)
Quarter: 2023Q4

REPORT INFORMATION
  Report Type: Spontaneous
  Country: US (occurrence: US)
  Receive Date: 20231129
  Receipt Date: 20231225
  Transmission Date: 20240109
  Serious: Yes (Other)
  Sender: FDA-Public Use
  Company Number: US-AUROBINDO-AUR-APL-2023-074992

PATIENT
  Age: 62 Year
  Sex: Female

DRUGS (6)
  1. RALOXIFENE [Suspect]
     Active Substance: RALOXIFENE
     Indication: Osteoporosis
     Dosage: 60 MILLIGRAM, ONCE A DAY
     Route: 065
  2. CALCIUM [Suspect]
     Active Substance: CALCIUM
     Indication: Osteoporosis
     Dosage: 500 MILLIGRAM, 3 TIMES A DAY
     Route: 065
  3. CHOLECALCIFEROL [Suspect]
     Active Substance: CHOLECALCIFEROL
     Indication: Osteoporosis
     Dosage: 50 MICROGRAM, ONCE A DAY
     Route: 065
  4. VOLTAREN [Concomitant]
     Active Substance: DICLOFENAC SODIUM
     Indication: Musculoskeletal pain
     Dosage: UNK
     Route: 065
  5. LIDOCAINE [Concomitant]
     Active Substance: LIDOCAINE
     Indication: Musculoskeletal pain
     Dosage: UNK
     Route: 065
  6. MELOXICAM [Concomitant]
     Active Substance: MELOXICAM
     Indication: Musculoskeletal pain
     Dosage: UNK
     Route: 065

REACTIONS (1)
  - Drug ineffective [Unknown]
